FAERS Safety Report 8325555-6 (Version None)
Quarter: 2012Q2

REPORT INFORMATION
  Report Type: 
  Country: None (occurrence: None)
  Receive Date: 20120427
  Receipt Date: 20120417
  Transmission Date: 20120825
  Serious: Yes (Other)
  Sender: FDA-Public Use
  Company Number: 2012SA021782

PATIENT
  Age: 48 Year
  Sex: Female
  Weight: 87.7 kg

DRUGS (4)
  1. ASPIRIN [Concomitant]
  2. SIMVASTATIN [Concomitant]
  3. BENAZEPRIL HYDROCHLORIDE AND HYDROCHLOROTHIAZIDE [Concomitant]
  4. MENTHOL / UNKNOWN / UNKNOWN [Suspect]
     Indication: ARTHRALGIA
     Dosage: TOPICAL
     Route: 061
     Dates: start: 20111212, end: 20111212

REACTIONS (4)
  - APPLICATION SITE ERYTHEMA [None]
  - APPLICATION SITE SWELLING [None]
  - APPLICATION SITE SCAR [None]
  - APPLICATION SITE BURN [None]
